FAERS Safety Report 7033527-7 (Version None)
Quarter: 2010Q4

REPORT INFORMATION
  Report Type: 
  Country: None (occurrence: None)
  Receive Date: 20101007
  Receipt Date: 20100923
  Transmission Date: 20110411
  Serious: Yes (Hospitalization)
  Sender: FDA-Public Use
  Company Number: PHHY2010FR63397

PATIENT
  Age: 79 Year
  Sex: Male

DRUGS (20)
  1. AREDIA [Suspect]
     Dosage: 90 MG
     Dates: start: 20100604
  2. AREDIA [Interacting]
     Dosage: 90 MG
     Dates: start: 20100624
  3. VANCOMYCIN [Interacting]
     Indication: SEPSIS
     Dosage: UNK
     Dates: start: 20100621
  4. AMIKIN [Interacting]
     Indication: SEPSIS
     Dosage: UNK
     Dates: start: 20100621, end: 20100625
  5. PERMIXON [Concomitant]
  6. PROSCAR [Concomitant]
     Dosage: 5 MG
  7. TAMSULOSIN HCL [Concomitant]
     Dosage: LP 0.4 MG
  8. DUPHALAC [Concomitant]
  9. OXYCODONE HCL [Concomitant]
  10. FUMAFER [Concomitant]
  11. ASCORBIC ACID [Concomitant]
  12. VITAMIN B-12 [Concomitant]
  13. VALACYCLOVIR HYDROCHLORIDE [Concomitant]
     Dosage: 500 MG
  14. GAVISCON [Concomitant]
  15. ESOMEPRAZOLE [Concomitant]
  16. ESCITALOPRAM [Concomitant]
  17. IMOVANE [Concomitant]
  18. XANAX [Concomitant]
  19. LOVENOX [Concomitant]
  20. PIPERACILLIN AND TAZOBACTAM [Concomitant]
     Dosage: UNK
     Dates: start: 20100621

REACTIONS (9)
  - ANURIA [None]
  - BLOOD CREATININE INCREASED [None]
  - DRUG CLEARANCE DECREASED [None]
  - DRUG INTERACTION [None]
  - ESCHERICHIA INFECTION [None]
  - HYPOTENSION [None]
  - RENAL FAILURE ACUTE [None]
  - RENAL TUBULAR NECROSIS [None]
  - SEPSIS [None]
